FAERS Safety Report 8522711-9 (Version None)
Quarter: 2012Q3

REPORT INFORMATION
  Report Type: 
  Country: None (occurrence: None)
  Receive Date: 20120719
  Receipt Date: 20120710
  Transmission Date: 20120928
  Serious: Yes (Hospitalization)
  Sender: FDA-Public Use
  Company Number: JP-GLAXOSMITHKLINE-B0806801A

PATIENT
  Sex: Female

DRUGS (7)
  1. EMEND [Concomitant]
     Dosage: 80MG PER DAY
     Route: 048
     Dates: start: 20120515, end: 20120516
  2. PACLITAXEL [Concomitant]
     Route: 065
  3. RESTAMIN [Concomitant]
     Indication: ANTIALLERGIC THERAPY
     Dosage: 50MG PER DAY
     Route: 048
     Dates: start: 20120514, end: 20120514
  4. PARAPLATIN AQ [Concomitant]
     Indication: UTERINE CANCER
     Dosage: 560MG PER DAY
     Route: 042
     Dates: start: 20120514, end: 20120514
  5. ZANTAC [Suspect]
     Indication: PREMEDICATION
     Dosage: 50MG PER DAY
     Route: 042
     Dates: start: 20120514, end: 20120514
  6. EMEND [Concomitant]
     Indication: PROPHYLAXIS OF NAUSEA AND VOMITING
     Dosage: 125MG PER DAY
     Route: 048
     Dates: start: 20120514, end: 20120514
  7. TAXOL [Concomitant]
     Indication: UTERINE CANCER
     Dosage: 260MG PER DAY
     Route: 042
     Dates: start: 20120514, end: 20120514

REACTIONS (6)
  - PARKINSONISM [None]
  - INJECTION SITE RASH [None]
  - MUSCLE RIGIDITY [None]
  - DYSARTHRIA [None]
  - RESTING TREMOR [None]
  - PARKINSONIAN GAIT [None]
